FAERS Safety Report 9318522 (Version 1)
Quarter: 2012Q4

REPORT INFORMATION
  Report Type: Spontaneous
  Country: GB (occurrence: None)
  Receive Date: 20121214
  Receipt Date: 20121214
  Transmission Date: 20130627
  Serious: Yes (Other)
  Sender: FDA-Public Use
  Company Number: 2012-19525

PATIENT
  Age: 61 Year
  Sex: Male

DRUGS (1)
  1. NAPROXEN (WATSON LABORATORIES) (NAPROXEN) UNK, UNKUNK [Suspect]
     Indication: GOUT
     Dates: start: 20120907, end: 20120915

REACTIONS (3)
  - Mouth ulceration [None]
  - Toothache [None]
  - Oral discomfort [None]
